FAERS Safety Report 9247263 (Version 2)
Quarter: 2013Q2

REPORT INFORMATION
  Report Type: Spontaneous
  Country: IT (occurrence: IT)
  Receive Date: 20130423
  Receipt Date: 20130515
  Transmission Date: 20140414
  Serious: Yes (Hospitalization)
  Sender: FDA-Public Use
  Company Number: IT-MERCK-1304ITA009548

PATIENT
  Age: 47 Year
  Sex: Male

DRUGS (4)
  1. TRIMETON [Suspect]
     Indication: PREMEDICATION
     Dosage: 4 MG, EVERY 8 WEEKS
     Route: 048
  2. REMICADE [Suspect]
     Indication: PSORIASIS
     Dosage: CYCLICAL , EVERY 8 WEEKS
     Route: 042
     Dates: start: 20100827, end: 20130411
  3. MICARDIS PLUS [Concomitant]
     Indication: HYPERTENSION
     Dosage: UNK
     Dates: start: 2010
  4. LIBRADIN [Concomitant]
     Indication: HYPERTENSION
     Dosage: UNK
     Dates: start: 2011

REACTIONS (3)
  - Chills [Recovered/Resolved]
  - Blood pressure increased [Recovered/Resolved]
  - Tremor [Recovered/Resolved]
